FAERS Safety Report 6545877-9 (Version None)
Quarter: 2010Q1

REPORT INFORMATION
  Report Type: 
  Country: None (occurrence: None)
  Receive Date: 20100121
  Receipt Date: 20090804
  Transmission Date: 20100710
  Serious: No
  Sender: FDA-Public Use
  Company Number: US-ALLERGAN-0910838US

PATIENT
  Age: 27 Year
  Sex: Female

DRUGS (2)
  1. TAZORAC [Suspect]
     Indication: ACNE
     Dosage: UNK
     Route: 061
     Dates: start: 20090501
  2. DOXYCYCLINE [Suspect]
     Indication: ACNE

REACTIONS (3)
  - ACNE [None]
  - DRUG INEFFECTIVE [None]
  - RASH [None]
